FAERS Safety Report 17402280 (Version 1)
Quarter: 2020Q1

REPORT INFORMATION
  Report Type: Spontaneous
  Country: US (occurrence: US)
  Receive Date: 20200211
  Receipt Date: 20200211
  Transmission Date: 20200409
  Serious: No
  Sender: FDA-Public Use
  Company Number: US-SA-2020SA030569

PATIENT
  Age: 53 Year
  Sex: Female

DRUGS (1)
  1. APIDRA SOLOSTAR [Suspect]
     Active Substance: INSULIN GLULISINE
     Indication: TYPE 1 DIABETES MELLITUS
     Dosage: 200 IU, OVER 3 DAYS
     Route: 065

REACTIONS (4)
  - Skin irritation [Unknown]
  - Hypersensitivity [Unknown]
  - Pain [Unknown]
  - Scratch [Unknown]
